FAERS Safety Report 7660187-4 (Version None)
Quarter: 2011Q3

REPORT INFORMATION
  Report Type: 
  Country: None (occurrence: None)
  Receive Date: 20110805
  Receipt Date: 20110729
  Transmission Date: 20111222
  Serious: Yes (Hospitalization, Other)
  Sender: FDA-Public Use
  Company Number: PHHY2011JP69540

PATIENT
  Age: 86 Year
  Sex: Male

DRUGS (3)
  1. KAYEXALATE [Concomitant]
     Dosage: UNK UKN, UNK
  2. ZOMETA [Suspect]
     Indication: METASTASES TO BONE
     Dosage: 4 MG, UNK
     Route: 042
     Dates: start: 20110713
  3. LACTEC [Concomitant]
     Dosage: UNK UKN, UNK

REACTIONS (12)
  - METABOLIC ACIDOSIS [None]
  - BACK PAIN [None]
  - HYPERKALAEMIA [None]
  - MUSCULAR WEAKNESS [None]
  - FALL [None]
  - RENAL IMPAIRMENT [None]
  - DYSLALIA [None]
  - DECREASED APPETITE [None]
  - PYREXIA [None]
  - BEDRIDDEN [None]
  - INCONTINENCE [None]
  - ALTERED STATE OF CONSCIOUSNESS [None]
